FAERS Safety Report 9747657 (Version 1)
Quarter: 2013Q4

REPORT INFORMATION
  Report Type: Spontaneous
  Country: US (occurrence: None)
  Receive Date: 20131211
  Receipt Date: 20131211
  Transmission Date: 20140711
  Serious: No
  Sender: FDA-Public Use
  Company Number: None

PATIENT
  Age: 73 Year
  Sex: Female
  Weight: 74.84 kg

DRUGS (5)
  1. ONDANSETRON HYDROCHLORIDE [Suspect]
     Indication: NAUSEA
     Dosage: 8 MG 30 TABS 1 EVERY 8 HRS AS NEEDED /NAUSEA BY MOUTH
     Route: 048
     Dates: start: 20131114
  2. MULTI VITAMIN [Concomitant]
  3. MINERALS [Concomitant]
  4. ALEEVE [Concomitant]
  5. IBUPROFEN [Concomitant]

REACTIONS (3)
  - Feeling abnormal [None]
  - Tremor [None]
  - Product taste abnormal [None]
